FAERS Safety Report 21093869 (Version 1)
Quarter: 2022Q3

REPORT INFORMATION
  Report Type: Report from Study
  Country: ES (occurrence: ES)
  Receive Date: 20220718
  Receipt Date: 20220718
  Transmission Date: 20221027
  Serious: Yes (Hospitalization)
  Sender: FDA-Public Use
  Company Number: None

PATIENT
  Age: 74 Year
  Sex: Female

DRUGS (7)
  1. IBUPROFEN [Interacting]
     Active Substance: IBUPROFEN
     Indication: Back pain
     Dosage: 1 DOSAGE FORM, Q8H (1 TABLET EVERY 8 HOURS)
     Route: 048
     Dates: start: 20220206, end: 20220209
  2. ASPIRIN [Interacting]
     Active Substance: ASPIRIN
     Indication: Product used for unknown indication
     Dosage: 1 DOSAGE FORM, QD (1 EVERY 24 HOURS)
     Route: 065
     Dates: start: 201812
  3. TICAGRELOR [Interacting]
     Active Substance: TICAGRELOR
     Indication: Product used for unknown indication
     Dosage: 1 DOSAGE FORM, BID (1 EVERY 12 HOURS)
     Route: 065
     Dates: start: 201812
  4. PANTOPRAZOL ACCORD [Concomitant]
     Dosage: 1 DOSAGE FORM, QD (1 EVERY 24 HOURS)
     Route: 065
     Dates: start: 2018
  5. METFORMINA AUROVITAS [Concomitant]
     Dosage: 1 DOSAGE FORM, Q8H (1 EVERY 8 HOURS)
     Route: 048
     Dates: start: 2018
  6. GABAPENTINA ALTER [Concomitant]
     Dosage: UNK
     Route: 065
     Dates: start: 2018
  7. LINAGLIPTIN [Concomitant]
     Active Substance: LINAGLIPTIN
     Dosage: 1 DOSAGE FORM, Q8H (1 EVERY 8 HOURS)
     Route: 048
     Dates: start: 2018

REACTIONS (2)
  - Duodenal ulcer haemorrhage [Recovered/Resolved]
  - Drug interaction [Unknown]

NARRATIVE: CASE EVENT DATE: 20220209
